FAERS Safety Report 10025178 (Version 2)
Quarter: 2014Q1

REPORT INFORMATION
  Report Type: Report from Study
  Country: ES (occurrence: ES)
  Receive Date: 20140320
  Receipt Date: 20140320
  Transmission Date: 20141002
  Serious: Yes (Hospitalization, Other)
  Sender: FDA-Public Use
  Company Number: ES-TEVA-468004USA

PATIENT
  Age: 66 Year
  Sex: Male

DRUGS (6)
  1. BENDAMUSTINE [Suspect]
     Indication: CHRONIC LYMPHOCYTIC LEUKAEMIA
     Dosage: DOSE 200 MG/2DAYS
     Route: 042
     Dates: start: 20131128
  2. BENDAMUSTINE [Suspect]
     Dosage: DOSE 200 MG/2DAYS
     Route: 042
     Dates: start: 20140205
  3. ACYCLOVIR [Concomitant]
     Indication: SKIN LESION
     Dosage: 800 MILLIGRAM DAILY;
     Dates: start: 20140122, end: 20140129
  4. OMEPRAZOLE [Concomitant]
     Dosage: 20 MILLIGRAM DAILY;
  5. SULFAMETHOXAZOLE/TRIMETHOPRIM [Concomitant]
     Dosage: 800/160 MG
     Route: 048
     Dates: start: 20131128
  6. CALCIUM FOLINATE [Concomitant]
     Indication: PROPHYLAXIS
     Route: 048
     Dates: start: 20131128

REACTIONS (3)
  - Drug-induced liver injury [Recovering/Resolving]
  - Pyrexia [Recovering/Resolving]
  - Chills [Recovering/Resolving]
